FAERS Safety Report 4288996-2 (Version None)
Quarter: 2004Q1

REPORT INFORMATION
  Report Type: 
  Country: None (occurrence: None)
  Receive Date: 20040206
  Receipt Date: 20040129
  Transmission Date: 20041129
  Serious: Yes (Hospitalization)
  Sender: FDA-Public Use
  Company Number: 200401370

PATIENT
  Age: 14 Year
  Sex: Female

DRUGS (2)
  1. ACETAMINOPHEN [Suspect]
     Dosage: PO
     Route: 048
  2. ACETYLCYSTEINE [Suspect]
     Indication: THERAPEUTIC AGENT TOXICITY
     Dosage: INTRAVENOUS
     Route: 042

REACTIONS (2)
  - OVERDOSE [None]
  - RASH [None]
